FAERS Safety Report 8737283 (Version 2)
Quarter: 2012Q4

REPORT INFORMATION
  Report Type: 
  Country: US (occurrence: US)
  Receive Date: 20120822
  Receipt Date: 20121102
  Transmission Date: 20130627
  Serious: Yes (Disabling, Other)
  Sender: FDA-Public Use
  Company Number: CHPA2012US017922

PATIENT
  Age: 47 Year
  Sex: Female

DRUGS (3)
  1. EXCEDRIN UNKNOWN [Suspect]
     Indication: HEADACHE
     Dosage: Unk, Unk
     Route: 048
     Dates: end: 20120115
  2. PRILOSEC [Concomitant]
     Dosage: UNK, QD
     Route: 048
  3. AMITIZA [Concomitant]
     Dosage: UNK, UNK
     Route: 048
     Dates: start: 201208

REACTIONS (5)
  - Impaired work ability [Unknown]
  - Irritable bowel syndrome [Not Recovered/Not Resolved]
  - Gastric disorder [Unknown]
  - Pain [Not Recovered/Not Resolved]
  - Abdominal pain upper [Not Recovered/Not Resolved]
